FAERS Safety Report 10594444 (Version 3)
Quarter: 2015Q1

REPORT INFORMATION
  Report Type: Spontaneous
  Country: US (occurrence: US)
  Receive Date: 20141119
  Receipt Date: 20150119
  Transmission Date: 20150720
  Serious: No
  Sender: FDA-Public Use
  Company Number: US-009507513-1411USA006229

PATIENT
  Age: 28 Year
  Sex: Female
  Weight: 99.77 kg

DRUGS (1)
  1. NEXPLANON [Suspect]
     Active Substance: ETONOGESTREL
     Dosage: UNK
     Route: 059
     Dates: start: 20130802, end: 20141110

REACTIONS (4)
  - Muscle spasms [Unknown]
  - Medical device complication [Recovered/Resolved]
  - Device breakage [Unknown]
  - Dizziness [Unknown]

NARRATIVE: CASE EVENT DATE: 20141110
